FAERS Safety Report 12588849 (Version 1)
Quarter: 2016Q3

REPORT INFORMATION
  Report Type: Spontaneous
  Country: US (occurrence: US)
  Receive Date: 20160725
  Receipt Date: 20160725
  Transmission Date: 20161109
  Serious: No
  Sender: FDA-Public Use
  Company Number: US-JNJFOC-20160624339

PATIENT
  Age: 74 Year
  Sex: Female
  Weight: 81.65 kg

DRUGS (4)
  1. ZYRTEC [Concomitant]
     Active Substance: CETIRIZINE HYDROCHLORIDE
     Indication: MULTIPLE ALLERGIES
     Dosage: 1 TABLET A DAY
     Route: 065
  2. VITAMIN D [Concomitant]
     Active Substance: CHOLECALCIFEROL
     Indication: NUTRITIONAL SUPPLEMENTATION
     Dosage: FROM 2 YEARS, 800 TO 1200MG DAILY
     Route: 065
  3. TYLENOL EXTRA STRENGTH [Suspect]
     Active Substance: ACETAMINOPHEN
     Indication: ARTHRALGIA
     Dosage: 1 CAPLET, DAILY AT NIGHT, FROM 5 YEARS
     Route: 048
  4. IRON [Concomitant]
     Active Substance: IRON
     Indication: NUTRITIONAL SUPPLEMENTATION
     Dosage: FROM 1 YEAR, 1/2 PILL A DAY
     Route: 065

REACTIONS (3)
  - Fatigue [Recovered/Resolved]
  - Incorrect drug administration duration [Recovered/Resolved]
  - Somnolence [Recovered/Resolved]
